FAERS Safety Report 16090470 (Version 2)
Quarter: 2020Q2

REPORT INFORMATION
  Report Type: Spontaneous
  Country: US (occurrence: US)
  Receive Date: 20190319
  Receipt Date: 20200407
  Transmission Date: 20200713
  Serious: No
  Sender: FDA-Public Use
  Company Number: US-TARO-2019TAR00106

PATIENT
  Age: 44 Year
  Sex: Male
  Weight: 83.9 kg

DRUGS (1)
  1. OXICONAZOLE NITRATE CREAM 1% [Suspect]
     Active Substance: OXICONAZOLE NITRATE
     Indication: RASH
     Dosage: ^A THIN APPLICATION,^ 2X/DAY
     Route: 061
     Dates: start: 201901, end: 2019

REACTIONS (2)
  - Application site pain [Recovered/Resolved]
  - Rash [Recovered/Resolved]

NARRATIVE: CASE EVENT DATE: 201901
